FAERS Safety Report 22628619 (Version 2)
Quarter: 2023Q2

REPORT INFORMATION
  Report Type: Report from Study
  Country: US (occurrence: US)
  Receive Date: 20230622
  Receipt Date: 20230629
  Transmission Date: 20230722
  Serious: Yes (Hospitalization)
  Sender: FDA-Public Use
  Company Number: US-ARGENX-2023-ARGX-US000321

PATIENT

DRUGS (2)
  1. VYVGART [Suspect]
     Active Substance: EFGARTIGIMOD ALFA-FCAB
     Indication: Myasthenia gravis
     Dosage: 10 MG/KG
     Route: 042
  2. VYVGART [Suspect]
     Active Substance: EFGARTIGIMOD ALFA-FCAB
     Dosage: 800 MG

REACTIONS (7)
  - Dysarthria [Recovering/Resolving]
  - Dysphagia [Recovering/Resolving]
  - Myasthenia gravis [Recovering/Resolving]
  - Ear pain [Unknown]
  - Eye pain [Unknown]
  - Pain in jaw [Unknown]
  - Dental discomfort [Unknown]

NARRATIVE: CASE EVENT DATE: 20230612
